FAERS Safety Report 7031694-2 (Version None)
Quarter: 2010Q4

REPORT INFORMATION
  Report Type: 
  Country: None (occurrence: None)
  Receive Date: 20101007
  Receipt Date: 20100928
  Transmission Date: 20110411
  Serious: Yes (Other)
  Sender: FDA-Public Use
  Company Number: US-RB-014146-10

PATIENT
  Age: 27 Year
  Sex: Female

DRUGS (1)
  1. DELSYM [Suspect]
     Route: 048
     Dates: start: 20100926

REACTIONS (2)
  - HALLUCINATION [None]
  - MOVEMENT DISORDER [None]
